FAERS Safety Report 15161716 (Version 1)
Quarter: 2018Q3

REPORT INFORMATION
  Report Type: Report from Study
  Country: US (occurrence: US)
  Receive Date: 20180718
  Receipt Date: 20180718
  Transmission Date: 20181010
  Serious: No
  Sender: FDA-Public Use
  Company Number: US-AMGEN-USASP2014009603

PATIENT
  Age: 67 Year
  Sex: Female

DRUGS (1)
  1. ENBREL [Suspect]
     Active Substance: ETANERCEPT
     Indication: PSORIASIS
     Dosage: 50 MG, TWICE WEEKLY
     Route: 065
     Dates: start: 2009

REACTIONS (5)
  - Therapeutic response decreased [Recovered/Resolved]
  - Seborrhoeic keratosis [Unknown]
  - Feeling abnormal [Not Recovered/Not Resolved]
  - Dry skin [Not Recovered/Not Resolved]
  - Psoriasis [Not Recovered/Not Resolved]

NARRATIVE: CASE EVENT DATE: 2012
